FAERS Safety Report 6796277-8 (Version None)
Quarter: 2010Q2

REPORT INFORMATION
  Report Type: 
  Country: None (occurrence: None)
  Receive Date: 20100625
  Receipt Date: 20100623
  Transmission Date: 20101027
  Serious: Yes (Hospitalization, Disabling, Other)
  Sender: FDA-Public Use
  Company Number: US-MERCK-0703USA04387

PATIENT
  Age: 69 Year
  Sex: Female

DRUGS (4)
  1. FOSAMAX [Suspect]
     Indication: OSTEOPOROSIS
     Route: 048
     Dates: start: 19970801, end: 20050401
  2. FOSAMAX [Suspect]
     Route: 048
     Dates: start: 19970713, end: 20030107
  3. ACTONEL [Concomitant]
     Route: 065
     Dates: start: 20030401, end: 20050101
  4. ASPIRIN [Concomitant]
     Route: 065

REACTIONS (35)
  - ABDOMINAL DISCOMFORT [None]
  - ACUTE MYOCARDIAL INFARCTION [None]
  - ACUTE RESPIRATORY FAILURE [None]
  - ARTERIAL OCCLUSIVE DISEASE [None]
  - ARTHRALGIA [None]
  - CARDIAC ENZYMES INCREASED [None]
  - CAROTID BRUIT [None]
  - CHRONIC OBSTRUCTIVE PULMONARY DISEASE [None]
  - CORONARY ARTERY DISEASE [None]
  - DEHYDRATION [None]
  - DEPRESSION [None]
  - DIVERTICULUM INTESTINAL [None]
  - EMPHYSEMA [None]
  - ESSENTIAL HYPERTENSION [None]
  - FEMORAL ARTERY OCCLUSION [None]
  - FISTULA [None]
  - FOOT FRACTURE [None]
  - GASTRITIS [None]
  - GOITRE [None]
  - HAEMANGIOMA OF LIVER [None]
  - HIP FRACTURE [None]
  - HYPERTENSION [None]
  - JAW DISORDER [None]
  - LARYNGITIS [None]
  - LUNG NEOPLASM [None]
  - MUSCLE STRAIN [None]
  - MYOFASCIAL PAIN SYNDROME [None]
  - OSTEOMYELITIS [None]
  - OSTEONECROSIS OF JAW [None]
  - PAIN IN JAW [None]
  - PARATHYROID DISORDER [None]
  - RENAL CYST [None]
  - TEMPOROMANDIBULAR JOINT SYNDROME [None]
  - WEIGHT DECREASED [None]
  - WEIGHT INCREASED [None]
